FAERS Safety Report 25915393 (Version 2)
Quarter: 2025Q4

REPORT INFORMATION
  Report Type: Spontaneous
  Country: CO (occurrence: CO)
  Receive Date: 20251013
  Receipt Date: 20251029
  Transmission Date: 20260118
  Serious: No
  Sender: PFIZER
  Company Number: CO-PFIZER INC-PV202500119872

PATIENT
  Sex: Male

DRUGS (1)
  1. GENOTROPIN [Suspect]
     Active Substance: SOMATROPIN
     Dosage: 1.0 MG, DAILY

REACTIONS (5)
  - Device leakage [Unknown]
  - Device delivery system issue [Unknown]
  - Patient-device incompatibility [Unknown]
  - Accidental exposure to product [Unknown]
  - Exposure via skin contact [Unknown]
